FAERS Safety Report 26116246 (Version 1)
Quarter: 2025Q4

REPORT INFORMATION
  Report Type: Spontaneous
  Country: US (occurrence: US)
  Receive Date: 20251203
  Receipt Date: 20251203
  Transmission Date: 20260117
  Serious: Yes (Hospitalization)
  Sender: Long Grove Pharmaceuticals
  Company Number: US-Long Grove-000165

PATIENT
  Age: 69 Year
  Sex: Male
  Weight: 88 kg

DRUGS (5)
  1. NOREPINEPHRINE [Suspect]
     Active Substance: NOREPINEPHRINE
     Indication: Vasoconstriction
     Dosage: 0.25 MICRGRAM/KG/MIN
  2. VASOPRESSIN [Concomitant]
     Active Substance: VASOPRESSIN
     Indication: Vasoconstriction
     Dosage: 0.05 UNITS/MIN
  3. FENTANYL [Concomitant]
     Active Substance: FENTANYL
     Indication: General anaesthesia
  4. PROPOFOL [Concomitant]
     Active Substance: PROPOFOL
     Indication: General anaesthesia
  5. ROCURONIUM [Concomitant]
     Active Substance: ROCURONIUM BROMIDE
     Indication: General anaesthesia

REACTIONS (1)
  - Supraventricular tachycardia [Recovered/Resolved]
